FAERS Safety Report 5277189-8 (Version None)
Quarter: 2007Q1

REPORT INFORMATION
  Report Type: 
  Country: None (occurrence: None)
  Receive Date: 20061213
  Receipt Date: 20060810
  Transmission Date: 20070707
  Serious: No
  Sender: FDA-Public Use
  Company Number: 2006UW13650

PATIENT
  Age: 53 Year
  Sex: Female
  Weight: 57.1532 kg

DRUGS (5)
  1. SEROQUEL [Suspect]
     Dosage: 25 MG DAILY PO
     Route: 048
     Dates: start: 20060503
  2. SEROQUEL [Suspect]
     Dosage: 100 MG DAILY PO
     Route: 048
  3. SEROQUEL [Suspect]
     Dosage: 200 MG DAILY PO
     Route: 048
     Dates: end: 20060530
  4. NEURONTIN [Concomitant]
  5. DURAGESIC-100 [Concomitant]

REACTIONS (1)
  - TARDIVE DYSKINESIA [None]
